FAERS Safety Report 21285960 (Version 3)
Quarter: 2023Q1

REPORT INFORMATION
  Report Type: Spontaneous
  Country: CA (occurrence: None)
  Receive Date: 20220902
  Receipt Date: 20230122
  Transmission Date: 20230418
  Serious: Yes (Hospitalization)
  Sender: FDA-Public Use
  Company Number: CA-ROCHE-3171169

PATIENT
  Sex: Female

DRUGS (1)
  1. ACTEMRA [Suspect]
     Active Substance: TOCILIZUMAB
     Indication: Rheumatoid arthritis
     Dosage: INFUSE 520 MG (1X400 MG AND 2X80MG) IV OVER 60 MIN Q4 WEEKS.
     Route: 042

REACTIONS (2)
  - Pancreatitis [Recovered/Resolved]
  - Gallbladder disorder [Recovered/Resolved]
